FAERS Safety Report 7817352-2 (Version None)
Quarter: 2011Q4

REPORT INFORMATION
  Report Type: 
  Country: None (occurrence: None)
  Receive Date: 20111017
  Receipt Date: 20111004
  Transmission Date: 20120403
  Serious: Yes (Death, Life-Threatening, Hospitalization, Other)
  Sender: FDA-Public Use
  Company Number: US-ELI_LILLY_AND_COMPANY-US201107001246

PATIENT
  Sex: Female
  Weight: 53.5 kg

DRUGS (20)
  1. PEPCID [Concomitant]
     Dosage: 20 MG, PRN
     Route: 048
  2. INSULIN [Concomitant]
     Route: 058
  3. THYROID TAB [Concomitant]
     Dosage: 30 MG, QD
     Route: 048
  4. ZINC OXIDE [Concomitant]
     Dosage: 11.3 %, TID
     Route: 061
  5. FORTEO [Suspect]
     Indication: OSTEOPOROSIS
     Dosage: 20 UG, QD
     Route: 058
     Dates: start: 20101201
  6. OS-CAL + D [Concomitant]
     Dosage: UNK, BID
  7. PEPCID [Concomitant]
     Dosage: 20 MG, BID
     Route: 048
  8. ACETAMINOPHEN AND HYDROCODONE BITARTRATE [Concomitant]
     Dosage: 325 MG, PRN
     Route: 048
  9. SODIUM CHLORIDE INJ [Concomitant]
     Dosage: UNK, PRN
  10. DEPAKOTE [Concomitant]
     Indication: CONVULSION
     Dosage: 500 MG, BID
     Route: 048
  11. ARTIFICIAL TEARS [Concomitant]
     Dosage: UNK, BID
     Route: 047
  12. VITAMIN D [Concomitant]
     Dosage: UNK, QD
     Route: 048
  13. GABAPENTIN [Concomitant]
     Dosage: 100 MG, QD
     Route: 048
  14. IRON [Concomitant]
     Dosage: 165 MG, BID
  15. VIMPAT [Concomitant]
     Dosage: UNK, BID
     Route: 048
  16. MINERAL OIL EMULSION [Concomitant]
     Dosage: UNK, PRN
     Route: 061
  17. MULTI-VITAMIN [Concomitant]
     Dosage: UNK, QD
  18. COLACE [Concomitant]
     Dosage: UNK, QD
     Route: 048
  19. VASOTEC [Concomitant]
     Dosage: 2.5 MG, BID
     Route: 048
  20. LOPRESSOR [Concomitant]
     Dosage: 0.5 MG, BID
     Route: 048

REACTIONS (11)
  - STRESS CARDIOMYOPATHY [None]
  - HYPERNATRAEMIA [None]
  - PNEUMONIA [None]
  - CONVULSION [None]
  - METABOLIC ENCEPHALOPATHY [None]
  - RESPIRATORY FAILURE [None]
  - GENERAL PHYSICAL HEALTH DETERIORATION [None]
  - HYPOPHAGIA [None]
  - PNEUMONIA ASPIRATION [None]
  - SYNCOPE [None]
  - URINARY TRACT INFECTION [None]
